FAERS Safety Report 6266692-X (Version None)
Quarter: 2009Q3

REPORT INFORMATION
  Report Type: 
  Country: None (occurrence: None)
  Receive Date: 20090714
  Receipt Date: 20070921
  Transmission Date: 20100115
  Serious: Yes (Hospitalization, Other)
  Sender: FDA-Public Use
  Company Number: US-ASTRAZENECA-2006UW21221

PATIENT
  Age: 38 Year
  Sex: Female
  Weight: 132.9 kg

DRUGS (20)
  1. SEROQUEL [Suspect]
     Indication: DEPRESSION
     Dosage: 100 - 300 MG
     Route: 048
     Dates: start: 20021125
  2. SEROQUEL [Suspect]
     Indication: SLEEP DISORDER
     Dosage: 100 - 300 MG
     Route: 048
     Dates: start: 20021125
  3. SEROQUEL [Suspect]
     Route: 048
     Dates: start: 20030101, end: 20040101
  4. SEROQUEL [Suspect]
     Route: 048
     Dates: start: 20030101, end: 20040101
  5. BUPROPION [Concomitant]
     Route: 065
  6. FENTANYL [Concomitant]
     Dosage: 0.005 MG/ML
     Route: 065
  7. LEVOTHYROXINE SODIUM [Concomitant]
     Dosage: 100 MCG AS DISPENSED
     Route: 065
  8. PROMETHAZINE [Concomitant]
     Route: 065
  9. ROCURONIUM BROMIDE [Concomitant]
     Dosage: 10 MG/ML
     Route: 065
  10. HYDROMORPHONE HCL [Concomitant]
     Dosage: 6 MG / 30 ML
     Route: 065
  11. NOVOLIN R [Concomitant]
     Route: 065
  12. ROFECOXIB [Concomitant]
     Route: 065
  13. BENADRYL [Concomitant]
     Dosage: 25 MG / 0.5 ML
     Route: 065
  14. GLUCAGON [Concomitant]
     Route: 065
  15. NALBUPHINE [Concomitant]
     Route: 065
  16. ROMAZICON [Concomitant]
     Dosage: 0.1 - 0.2 MG, FLUCTUATING
     Route: 065
  17. LORATADINE [Concomitant]
     Route: 065
  18. COLACE [Concomitant]
     Route: 065
  19. LOVENOX [Concomitant]
     Route: 065
  20. ACETAMINOPHEN [Concomitant]
     Route: 065

REACTIONS (9)
  - BILE DUCT EXPLORATION [None]
  - BLOOD CHOLESTEROL INCREASED [None]
  - BLOOD GLUCOSE INCREASED [None]
  - CHOLELITHIASIS [None]
  - DIABETES MELLITUS [None]
  - HEADACHE [None]
  - MIGRAINE [None]
  - OBESITY [None]
  - POST PROCEDURAL BILE LEAK [None]
